FAERS Safety Report 8516517-4 (Version None)
Quarter: 2012Q3

REPORT INFORMATION
  Report Type: 
  Country: None (occurrence: None)
  Receive Date: 20120711
  Receipt Date: 20120711
  Transmission Date: 20120928
  Serious: Yes (Hospitalization)
  Sender: FDA-Public Use
  Company Number: None

PATIENT
  Age: 47 Year
  Sex: Male
  Weight: 92.8 kg

DRUGS (2)
  1. (#1) VELCADE 1.3MG/M2 IV Q WEEK [Concomitant]
  2. PANOBINOSTAT 15 MG NOVARTIS PHARMACEUTICALS [Suspect]
     Indication: MANTLE CELL LYMPHOMA
     Dosage: 15 MG Q M-W-F 4WK CYCLE PO
     Route: 048
     Dates: start: 20120409, end: 20120702

REACTIONS (1)
  - TOOTHACHE [None]
